FAERS Safety Report 15566102 (Version 1)
Quarter: 2018Q4

REPORT INFORMATION
  Report Type: Spontaneous
  Country: US (occurrence: US)
  Receive Date: 20181030
  Receipt Date: 20181030
  Transmission Date: 20190205
  Serious: No
  Sender: FDA-Public Use
  Company Number: US-NOVOPROD-586643

PATIENT
  Age: 82 Year
  Sex: Female
  Weight: 58.96 kg

DRUGS (1)
  1. VAGIFEM [Suspect]
     Active Substance: ESTRADIOL
     Indication: URINARY TRACT INFECTION
     Dosage: TWICE PER WEEK
     Route: 067
     Dates: start: 201710

REACTIONS (2)
  - Product use in unapproved indication [Unknown]
  - Urinary tract infection [Recovered/Resolved]

NARRATIVE: CASE EVENT DATE: 201710
